FAERS Safety Report 9725935 (Version 2)
Quarter: 2014Q1

REPORT INFORMATION
  Report Type: Spontaneous
  Country: US (occurrence: US)
  Receive Date: 20131203
  Receipt Date: 20140221
  Transmission Date: 20141002
  Serious: Yes (Hospitalization)
  Sender: FDA-Public Use
  Company Number: US-BAYER-2013-141985

PATIENT
  Age: 29 Year
  Sex: Female
  Weight: 63.95 kg

DRUGS (2)
  1. MIRENA [Suspect]
     Indication: CONTRACEPTION
     Dosage: 20 MCG/24HR, CONT
     Route: 015
     Dates: start: 20080825, end: 20130905
  2. MIRENA [Suspect]
     Indication: CONTRACEPTION
     Dosage: 20 MCG/24HR, CONT
     Route: 015
     Dates: start: 20080825, end: 20130905

REACTIONS (18)
  - Uterine perforation [None]
  - Abortion spontaneous [None]
  - Pregnancy with contraceptive device [None]
  - Drug ineffective [None]
  - Infertility female [None]
  - Abdominal pain [None]
  - Pelvic pain [None]
  - Injury [None]
  - Anxiety [None]
  - Menorrhagia [None]
  - Dizziness [None]
  - Flank pain [None]
  - Scar [None]
  - Accidental overdose [None]
  - Mental disorder [None]
  - Migraine [None]
  - Device issue [None]
  - Adverse drug reaction [None]
